FAERS Safety Report 9750018 (Version 2)
Quarter: 2013Q4

REPORT INFORMATION
  Report Type: Spontaneous
  Country: DE (occurrence: DE)
  Receive Date: 20131212
  Receipt Date: 20131212
  Transmission Date: 20140711
  Serious: No
  Sender: FDA-Public Use
  Company Number: DE-GILEAD-DE-CVT-090555

PATIENT
  Age: 73 Year
  Sex: Female

DRUGS (7)
  1. RANEXA [Suspect]
     Indication: MYOCARDIAL ISCHAEMIA
     Route: 048
     Dates: start: 20090812, end: 20090820
  2. TORASEMIDE [Concomitant]
  3. SIMVASTATIN [Concomitant]
  4. BELOC ZOK [Concomitant]
  5. PLAVIX [Concomitant]
  6. DELIX [Concomitant]
  7. METOPROLOL                         /00376901/ [Concomitant]

REACTIONS (2)
  - Dizziness [Recovered/Resolved]
  - Nausea [Recovered/Resolved]
